FAERS Safety Report 24339659 (Version 1)
Quarter: 2024Q3

REPORT INFORMATION
  Report Type: Spontaneous
  Country: US (occurrence: US)
  Receive Date: 20240919
  Receipt Date: 20240919
  Transmission Date: 20241017
  Serious: No
  Sender: BRISTOL MYERS SQUIBB
  Company Number: US-BRISTOL-MYERS SQUIBB COMPANY-2024-148878

PATIENT
  Age: 65 Year
  Sex: Female

DRUGS (2)
  1. AUGTYRO [Suspect]
     Active Substance: REPOTRECTINIB
     Indication: Product used for unknown indication
     Route: 048
     Dates: start: 202312
  2. AUGTYRO [Suspect]
     Active Substance: REPOTRECTINIB
     Dates: start: 2024

REACTIONS (4)
  - Pain in extremity [Recovered/Resolved]
  - Muscular weakness [Recovering/Resolving]
  - Gastrooesophageal reflux disease [Unknown]
  - Dizziness [Unknown]

NARRATIVE: CASE EVENT DATE: 20240101
